FAERS Safety Report 21096436 (Version 1)
Quarter: 2022Q3

REPORT INFORMATION
  Report Type: Spontaneous
  Country: US (occurrence: US)
  Receive Date: 20220718
  Receipt Date: 20220718
  Transmission Date: 20221027
  Serious: Yes (Hospitalization)
  Sender: FDA-Public Use
  Company Number: US-HORIZON THERAPEUTICS-HZN-2022-005208

PATIENT

DRUGS (2)
  1. RAYOS [Suspect]
     Active Substance: PREDNISONE
     Indication: Stevens-Johnson syndrome
     Dosage: 1ST DOSE
     Route: 065
  2. RAYOS [Suspect]
     Active Substance: PREDNISONE
     Indication: Epidermal necrosis

REACTIONS (4)
  - Generalised oedema [Unknown]
  - Pain [Unknown]
  - Scar [Unknown]
  - Drug ineffective [Unknown]
